FAERS Safety Report 9912428 (Version 2)
Quarter: 2014Q2

REPORT INFORMATION
  Report Type: Spontaneous
  Country: AR (occurrence: AR)
  Receive Date: 20140220
  Receipt Date: 20140623
  Transmission Date: 20141212
  Serious: Yes (Other)
  Sender: FDA-Public Use
  Company Number: AR-PFIZER INC-2014047152

PATIENT
  Age: 66 Year
  Sex: Male

DRUGS (1)
  1. SUTENT [Suspect]
     Indication: RENAL CELL CARCINOMA
     Dosage: 1 DF, 1X/DAY (28 DAYS ON AND 14 DAYS OFF)
     Dates: start: 201105, end: 201204

REACTIONS (4)
  - Cardiotoxicity [Recovered/Resolved]
  - Cardiac failure [Unknown]
  - Anaemia [Not Recovered/Not Resolved]
  - Inflammation [Recovered/Resolved]
